FAERS Safety Report 7703943-6 (Version None)
Quarter: 2011Q3

REPORT INFORMATION
  Report Type: 
  Country: None (occurrence: None)
  Receive Date: 20110823
  Receipt Date: 20110817
  Transmission Date: 20111222
  Serious: Yes (Hospitalization)
  Sender: FDA-Public Use
  Company Number: US-SANOFI-AVENTIS-2011SA052520

PATIENT
  Age: 63 Year
  Sex: Female

DRUGS (6)
  1. FUROSEMIDE [Concomitant]
  2. INSULIN [Concomitant]
  3. ALBUTEROL SULFATE AUTOHALER [Concomitant]
     Route: 055
  4. PLAVIX [Suspect]
     Indication: STENT PLACEMENT
     Route: 048
     Dates: start: 20030101
  5. VYTORIN [Concomitant]
  6. METOPROLOL [Concomitant]

REACTIONS (2)
  - ARRHYTHMIA [None]
  - CHROMATURIA [None]
